FAERS Safety Report 25859316 (Version 1)
Quarter: 2025Q3

REPORT INFORMATION
  Report Type: Spontaneous
  Country: US (occurrence: US)
  Receive Date: 20250929
  Receipt Date: 20250929
  Transmission Date: 20251021
  Serious: No
  Sender: IPSEN BIOPHARMACEUTICALS, INC.
  Company Number: US-IPSEN Group, Research and Development-2025-22992

PATIENT
  Age: 84 Year
  Sex: Male
  Weight: 73 kg

DRUGS (20)
  1. TAZVERIK [Suspect]
     Active Substance: TAZEMETOSTAT HYDROBROMIDE
     Indication: Follicular lymphoma stage II
     Route: 048
     Dates: start: 20240718
  2. BENZONATATE [Concomitant]
     Active Substance: BENZONATATE
  3. DOXYCYCLINE HYCLATE [Concomitant]
     Active Substance: DOXYCYCLINE HYCLATE
  4. ELIQUIS [Concomitant]
     Active Substance: APIXABAN
  5. EPLERENONE [Concomitant]
     Active Substance: EPLERENONE
  6. FERROUS SULFATE [Concomitant]
     Active Substance: FERROUS SULFATE
  7. FLONASE [Concomitant]
     Active Substance: FLUTICASONE PROPIONATE
  8. FOLIC ACID [Concomitant]
     Active Substance: FOLIC ACID
  9. IMODIUM A-D [Concomitant]
     Active Substance: LOPERAMIDE HYDROCHLORIDE
  10. METOPROLOL TARTRATE [Concomitant]
     Active Substance: METOPROLOL TARTRATE
  11. NITROGLYCERIN [Concomitant]
     Active Substance: NITROGLYCERIN
  12. OMEPRAZOLE [Concomitant]
     Active Substance: OMEPRAZOLE
  13. TELMISARTAN [Concomitant]
     Active Substance: TELMISARTAN
  14. TRAVATAN Z [Concomitant]
     Active Substance: TRAVOPROST
  15. TYLENOL [Concomitant]
     Active Substance: ACETAMINOPHEN
  16. ALFUZOSIN [Concomitant]
     Active Substance: ALFUZOSIN
  17. ALLOPURINOL [Concomitant]
     Active Substance: ALLOPURINOL
  18. AMOXICILLIN\CLAVULANATE POTASSIUM [Concomitant]
     Active Substance: AMOXICILLIN\CLAVULANATE POTASSIUM
  19. ATORVASTATIN CALCIUM [Concomitant]
     Active Substance: ATORVASTATIN CALCIUM
  20. B12-Active [Concomitant]

REACTIONS (2)
  - Muscle spasms [Recovering/Resolving]
  - Product dose omission issue [Unknown]
